FAERS Safety Report 23048407 (Version 1)
Quarter: 2023Q4

REPORT INFORMATION
  Report Type: Spontaneous
  Country: CN (occurrence: CN)
  Receive Date: 20231010
  Receipt Date: 20231010
  Transmission Date: 20240110
  Serious: Yes (Hospitalization)
  Sender: FDA-Public Use
  Company Number: CN-002147023-NVSC2023CN211066

PATIENT
  Age: 66 Year
  Sex: Female
  Weight: 64 kg

DRUGS (1)
  1. RANIBIZUMAB [Suspect]
     Active Substance: RANIBIZUMAB
     Indication: Antiangiogenic therapy
     Route: 031
     Dates: start: 20230725, end: 20230926

REACTIONS (1)
  - Ear pain [Recovering/Resolving]

NARRATIVE: CASE EVENT DATE: 20230910
